FAERS Safety Report 7142629-6 (Version None)
Quarter: 2010Q4

REPORT INFORMATION
  Report Type: 
  Country: None (occurrence: None)
  Receive Date: 20101207
  Receipt Date: 20101129
  Transmission Date: 20110411
  Serious: Yes (Life-Threatening)
  Sender: FDA-Public Use
  Company Number: CA-ROCHE-738607

PATIENT
  Sex: Female
  Weight: 72 kg

DRUGS (12)
  1. BEVACIZUMAB [Suspect]
     Indication: GLIOBLASTOMA
     Dosage: FORM: INFUSION
     Route: 042
     Dates: start: 20100924
  2. CARBAMAZEPINE [Concomitant]
     Route: 048
     Dates: start: 20010101
  3. HYDROCORTISONE [Concomitant]
     Route: 048
     Dates: start: 20040101
  4. LEVOTHYROXINE SODIUM [Concomitant]
     Route: 048
     Dates: start: 20040101
  5. ESTRACE [Concomitant]
     Route: 048
  6. PROVERA [Concomitant]
     Route: 048
     Dates: start: 20090101
  7. TRAMADOL HCL [Concomitant]
     Route: 042
     Dates: start: 20080101
  8. ATIVAN [Concomitant]
     Dosage: 1 MG SUBLINGUAL INTRAVENOUS ONCE DAILY
     Route: 050
     Dates: start: 20020101
  9. GRAVOL TAB [Concomitant]
  10. AERIUS [Concomitant]
  11. ONDANSETRON [Concomitant]
     Dates: start: 20100918
  12. VP 16 [Concomitant]
     Dates: start: 20100918

REACTIONS (6)
  - DRY SKIN [None]
  - FATIGUE [None]
  - GRAND MAL CONVULSION [None]
  - ORAL HERPES [None]
  - PRURITUS [None]
  - RASH [None]
